FAERS Safety Report 14435031 (Version 1)
Quarter: 2018Q1

REPORT INFORMATION
  Report Type: Spontaneous
  Country: US (occurrence: US)
  Receive Date: 20180124
  Receipt Date: 20180124
  Transmission Date: 20180509
  Serious: Yes (Other)
  Sender: FDA-Public Use
  Company Number: None

PATIENT
  Age: 37 Year
  Sex: Female

DRUGS (4)
  1. IBUPROFEN. [Concomitant]
     Active Substance: IBUPROFEN
  2. CLOBETASOL [Concomitant]
     Active Substance: CLOBETASOL
  3. ENBREL [Suspect]
     Active Substance: ETANERCEPT
     Indication: PSORIASIS
     Dosage: 50MG/ML 1 PEN SQ EVERY WEEK SUBCUTANEOUS
     Route: 058
     Dates: start: 201705, end: 201801
  4. DOXYCYCLINE. [Concomitant]
     Active Substance: DOXYCYCLINE

REACTIONS (1)
  - Maternal exposure timing unspecified [None]

NARRATIVE: CASE EVENT DATE: 201801
